FAERS Safety Report 21568456 (Version 1)
Quarter: 2022Q4

REPORT INFORMATION
  Report Type: Spontaneous
  Country: US (occurrence: US)
  Receive Date: 20221108
  Receipt Date: 20221108
  Transmission Date: 20230113
  Serious: No
  Sender: FDA-Public Use
  Company Number: US-MYLANLABS-2022M1119117

PATIENT
  Age: 65 Year
  Sex: Female
  Weight: 81.65 kg

DRUGS (2)
  1. AMLODIPINE [Suspect]
     Active Substance: AMLODIPINE BESYLATE
     Indication: Hypertension
     Dosage: 5 MILLIGRAM, QD (5MG DAILY BY MOUTH)
     Route: 048
     Dates: start: 202012
  2. PAXLOVID [Suspect]
     Active Substance: NIRMATRELVIR\RITONAVIR
     Indication: COVID-19
     Dosage: UNK (2 PILLS AT A TIME,ONE WAS PALE YELLOW AND ONE WAS WHITE TWICE DAILY BY MOUTH)
     Route: 048
     Dates: start: 20220630, end: 20220704

REACTIONS (3)
  - Blood pressure decreased [Recovering/Resolving]
  - Skin discolouration [Unknown]
  - Therapy interrupted [Recovered/Resolved]

NARRATIVE: CASE EVENT DATE: 20220704
